FAERS Safety Report 7742717-7 (Version None)
Quarter: 2011Q3

REPORT INFORMATION
  Report Type: 
  Country: None (occurrence: None)
  Receive Date: 20110912
  Receipt Date: 20110831
  Transmission Date: 20111222
  Serious: Yes (Hospitalization)
  Sender: FDA-Public Use
  Company Number: US-BRISTOL-MYERS SQUIBB COMPANY-16020059

PATIENT
  Age: 65 Year
  Sex: Male

DRUGS (1)
  1. WARFARIN SODIUM [Suspect]
     Indication: THROMBOSIS
     Dosage: 5MG AND 7/12 MG
     Dates: start: 20110802

REACTIONS (4)
  - RECTAL HAEMORRHAGE [None]
  - AORTIC ANEURYSM [None]
  - CHEST PAIN [None]
  - OEDEMA PERIPHERAL [None]
